FAERS Safety Report 14137524 (Version 1)
Quarter: 2017Q4

REPORT INFORMATION
  Report Type: Spontaneous
  Country: US (occurrence: US)
  Receive Date: 20171027
  Receipt Date: 20171027
  Transmission Date: 20180321
  Serious: Yes (Other)
  Sender: FDA-Public Use
  Company Number: US-TEVA-819510USA

PATIENT
  Age: 16 Year
  Sex: Male

DRUGS (2)
  1. DOXORUBICIN [Suspect]
     Active Substance: DOXORUBICIN
     Indication: UNDIFFERENTIATED SARCOMA
     Route: 065
  2. PAZOPANIB [Suspect]
     Active Substance: PAZOPANIB
     Indication: UNDIFFERENTIATED SARCOMA
     Route: 065

REACTIONS (2)
  - Acute pulmonary histoplasmosis [Recovered/Resolved]
  - Infection reactivation [Recovered/Resolved]
